FAERS Safety Report 18411803 (Version 3)
Quarter: 2020Q4

REPORT INFORMATION
  Report Type: Spontaneous
  Country: PT (occurrence: PT)
  Receive Date: 20201021
  Receipt Date: 20201109
  Transmission Date: 20210114
  Serious: Yes (Death, Hospitalization, Other)
  Sender: FDA-Public Use
  Company Number: PT-MYLANLABS-2020M1088321

PATIENT
  Age: 65 Year
  Sex: Male

DRUGS (1)
  1. AMIODARONE [Suspect]
     Active Substance: AMIODARONE
     Indication: ATRIAL FIBRILLATION
     Dosage: 200 MG

REACTIONS (11)
  - Organising pneumonia [Fatal]
  - Pulmonary toxicity [Fatal]
  - Drug abuse [Unknown]
  - Condition aggravated [Fatal]
  - Toxicity to various agents [Fatal]
  - Asthenia [Fatal]
  - Crepitations [Fatal]
  - Dyspnoea at rest [Fatal]
  - Lung infiltration [Fatal]
  - Hypoxia [Fatal]
  - Overdose [Unknown]
